FAERS Safety Report 16318502 (Version 2)
Quarter: 2019Q3

REPORT INFORMATION
  Report Type: Report from Study
  Country: US (occurrence: US)
  Receive Date: 20190516
  Receipt Date: 20190704
  Transmission Date: 20191004
  Serious: Yes (Hospitalization, Other)
  Sender: FDA-Public Use
  Company Number: US-BIOGEN-2019BI00737129

PATIENT
  Sex: Male

DRUGS (7)
  1. TECFIDERA [Suspect]
     Active Substance: DIMETHYL FUMARATE
     Indication: MULTIPLE SCLEROSIS
     Dosage: STARTING DOSE
     Route: 048
     Dates: start: 20180302, end: 20180308
  2. TECFIDERA [Suspect]
     Active Substance: DIMETHYL FUMARATE
     Route: 065
  3. OXYCONTIN [Concomitant]
     Active Substance: OXYCODONE HYDROCHLORIDE
     Indication: PRODUCT USED FOR UNKNOWN INDICATION
     Route: 065
  4. TECFIDERA [Suspect]
     Active Substance: DIMETHYL FUMARATE
     Route: 065
  5. TECFIDERA [Suspect]
     Active Substance: DIMETHYL FUMARATE
     Route: 065
     Dates: end: 201905
  6. TECFIDERA [Suspect]
     Active Substance: DIMETHYL FUMARATE
     Dosage: MAINTENANCE DOSE
     Route: 048
     Dates: start: 20180309
  7. TECFIDERA [Suspect]
     Active Substance: DIMETHYL FUMARATE
     Route: 065

REACTIONS (15)
  - Spinal fracture [Unknown]
  - Back disorder [Not Recovered/Not Resolved]
  - Feeling abnormal [Recovered/Resolved]
  - Mobility decreased [Not Recovered/Not Resolved]
  - Optic neuritis [Not Recovered/Not Resolved]
  - Urinary tract infection [Recovered/Resolved]
  - Salivary duct obstruction [Recovered/Resolved]
  - Gait disturbance [Unknown]
  - Sinusitis [Recovered/Resolved]
  - Balance disorder [Not Recovered/Not Resolved]
  - Central nervous system lesion [Unknown]
  - Blood test abnormal [Unknown]
  - Sepsis [Recovered/Resolved]
  - Fall [Recovered/Resolved]
  - Cystitis [Recovered/Resolved]

NARRATIVE: CASE EVENT DATE: 2018
